FAERS Safety Report 19962814 (Version 29)
Quarter: 2024Q2

REPORT INFORMATION
  Report Type: Other
  Country: DE (occurrence: DE)
  Receive Date: 20211018
  Receipt Date: 20240410
  Transmission Date: 20240715
  Serious: Yes (Other)
  Sender: FDA-Public Use
  Company Number: DE-ROCHE-2351472

PATIENT
  Age: 41 Year
  Sex: Female
  Weight: 40 kg

DRUGS (20)
  1. OCREVUS [Suspect]
     Active Substance: OCRELIZUMAB
     Indication: Secondary progressive multiple sclerosis
     Dosage: 185 DAYS
     Route: 042
     Dates: start: 20190701
  2. OCREVUS [Suspect]
     Active Substance: OCRELIZUMAB
     Route: 042
     Dates: start: 20200106
  3. OCREVUS [Suspect]
     Active Substance: OCRELIZUMAB
     Route: 042
     Dates: start: 20200706
  4. OCREVUS [Suspect]
     Active Substance: OCRELIZUMAB
     Route: 042
     Dates: start: 20210313
  5. OCREVUS [Suspect]
     Active Substance: OCRELIZUMAB
     Route: 042
     Dates: start: 20210318
  6. OCREVUS [Suspect]
     Active Substance: OCRELIZUMAB
     Dosage: 3RD MAINTENANCE DOSE
     Route: 042
     Dates: start: 20210927
  7. OCREVUS [Suspect]
     Active Substance: OCRELIZUMAB
     Route: 042
     Dates: start: 20200706
  8. COMIRNATY (TOZINAMERAN) [Suspect]
     Active Substance: TOZINAMERAN
     Indication: COVID-19 immunisation
     Dosage: FIRST VACCINATION
     Route: 065
     Dates: start: 20210708
  9. COMIRNATY (TOZINAMERAN) [Suspect]
     Active Substance: TOZINAMERAN
     Dosage: SECOND VACCINATION
     Route: 065
     Dates: start: 20210805
  10. ESTRADIOL [Suspect]
     Active Substance: ESTRADIOL
     Indication: Osteoporosis
     Dosage: HORMONE SUPPLEMENTARY TREATMENT, TOGETHER WITH UTROGEST
     Route: 065
     Dates: start: 20190812, end: 20190812
  11. PROGESTERONE [Suspect]
     Active Substance: PROGESTERONE
     Indication: Osteoporosis
     Dosage: HORMONE SUPPLEMENTARY TREATMENT, TOGETHER WITH GYNOKADIN AND TOGETHER WITH ESTRADIOL
     Route: 065
     Dates: start: 20190812
  12. PROGESTERONE [Suspect]
     Active Substance: PROGESTERONE
     Dosage: TOGETHER WITH ESTRADIOL
     Route: 065
  13. ESTRADIOL [Suspect]
     Active Substance: ESTRADIOL
     Indication: Osteoporosis
     Dosage: TOGETHER WITH UTROGEST
     Route: 065
  14. CORTISONE [Suspect]
     Active Substance: CORTISONE
     Indication: Premedication
     Dosage: CORTISONE (300 MG I.V.; PRE-MEDICATION) OF THE 4TH MAINTENANCE DOSE (04.04.2022)
     Route: 042
     Dates: start: 20220404
  15. CALCIUM [Concomitant]
     Active Substance: CALCIUM
     Dosage: FORM: CHEWABLE TABLETS?TOGETHER WITH VITAMIN D
  16. TOLTERODINE TARTRATE [Concomitant]
     Active Substance: TOLTERODINE TARTRATE
  17. IRON [Concomitant]
     Active Substance: IRON
  18. FLUVOXAMINE [Concomitant]
     Active Substance: FLUVOXAMINE
  19. LEUCOVORIN [Concomitant]
     Active Substance: LEUCOVORIN\LEUCOVORIN CALCIUM
  20. TOLTERODINE [Concomitant]
     Active Substance: TOLTERODINE

REACTIONS (88)
  - Suicidal ideation [Recovered/Resolved]
  - Cardiovascular insufficiency [Not Recovered/Not Resolved]
  - Circulatory collapse [Recovered/Resolved]
  - Intentional self-injury [Not Recovered/Not Resolved]
  - Headache [Recovered/Resolved]
  - Panic attack [Recovered/Resolved]
  - Mood swings [Recovered/Resolved]
  - Pain in jaw [Not Recovered/Not Resolved]
  - Insomnia [Recovered/Resolved]
  - Urinary incontinence [Not Recovered/Not Resolved]
  - Pruritus [Recovered/Resolved]
  - Limb discomfort [Recovered/Resolved]
  - Visual field defect [Recovered/Resolved]
  - Anxiety [Not Recovered/Not Resolved]
  - Blood pressure decreased [Recovered/Resolved]
  - Depression [Not Recovered/Not Resolved]
  - Oedema [Unknown]
  - Abdominal pain upper [Recovered/Resolved]
  - Aggression [Not Recovered/Not Resolved]
  - Vision blurred [Recovered/Resolved]
  - Pyrexia [Recovered/Resolved]
  - Coordination abnormal [Not Recovered/Not Resolved]
  - Device failure [Not Recovered/Not Resolved]
  - Back pain [Recovering/Resolving]
  - White blood cell count decreased [Recovering/Resolving]
  - Psoriasis [Recovered/Resolved]
  - Weight increased [Recovered/Resolved]
  - Chills [Recovered/Resolved]
  - Headache [Recovered/Resolved]
  - Arthralgia [Not Recovered/Not Resolved]
  - Tendon pain [Recovered/Resolved]
  - Constipation [Recovered/Resolved]
  - Fluid retention [Recovering/Resolving]
  - Nausea [Not Recovered/Not Resolved]
  - Arthralgia [Recovered/Resolved]
  - Muscular weakness [Not Recovered/Not Resolved]
  - Salivary hypersecretion [Recovered/Resolved]
  - Visual impairment [Recovered/Resolved]
  - Drug ineffective [Unknown]
  - Oropharyngeal pain [Recovered/Resolved]
  - Off label use [Unknown]
  - Nerve compression [Unknown]
  - Skin burning sensation [Recovered/Resolved]
  - Chest pain [Recovered/Resolved]
  - Toothache [Recovered/Resolved]
  - Pain in extremity [Recovered/Resolved]
  - Weight decreased [Not Recovered/Not Resolved]
  - Anger [Not Recovered/Not Resolved]
  - Bacterial vulvovaginitis [Not Recovered/Not Resolved]
  - Hypoaesthesia [Recovered/Resolved]
  - Throat irritation [Recovered/Resolved]
  - Musculoskeletal stiffness [Recovered/Resolved]
  - Fatigue [Not Recovered/Not Resolved]
  - Fatigue [Not Recovered/Not Resolved]
  - Food poisoning [Recovered/Resolved]
  - Myalgia [Recovered/Resolved]
  - Arthralgia [Not Recovered/Not Resolved]
  - Mucosal dryness [Not Recovered/Not Resolved]
  - Depression [Recovered/Resolved]
  - B-lymphocyte count increased [Recovered/Resolved]
  - Migraine [Recovered/Resolved]
  - Limb discomfort [Recovering/Resolving]
  - Fatigue [Not Recovered/Not Resolved]
  - Feeling drunk [Recovered/Resolved]
  - Gait disturbance [Recovered/Resolved]
  - Pain in extremity [Recovered/Resolved]
  - COVID-19 [Recovered/Resolved]
  - Paraesthesia [Recovering/Resolving]
  - Dental prosthesis placement [Unknown]
  - Fine motor skill dysfunction [Recovering/Resolving]
  - Weight decreased [Recovering/Resolving]
  - Oropharyngeal pain [Recovered/Resolved]
  - Influenza like illness [Recovered/Resolved]
  - B-lymphocyte count increased [Not Recovered/Not Resolved]
  - Hot flush [Unknown]
  - Nail bed inflammation [Recovered/Resolved]
  - Nasopharyngitis [Recovered/Resolved]
  - Insomnia [Recovered/Resolved]
  - Tooth loss [Recovered/Resolved]
  - Hypoaesthesia [Not Recovered/Not Resolved]
  - Throat irritation [Recovered/Resolved]
  - Nasopharyngitis [Recovered/Resolved]
  - Pain in extremity [Recovered/Resolved]
  - Influenza like illness [Recovered/Resolved]
  - B-lymphocyte count decreased [Unknown]
  - Nausea [Recovered/Resolved]
  - Dizziness [Recovered/Resolved]
  - Sensory disturbance [Recovered/Resolved]

NARRATIVE: CASE EVENT DATE: 20190701
